FAERS Safety Report 7464011-4 (Version None)
Quarter: 2011Q2

REPORT INFORMATION
  Report Type: 
  Country: None (occurrence: None)
  Receive Date: 20110506
  Receipt Date: 20110426
  Transmission Date: 20111010
  Serious: Yes (Hospitalization, Other)
  Sender: FDA-Public Use
  Company Number: FR-ALLERGAN-1106132US

PATIENT
  Age: 49 Year
  Sex: Female

DRUGS (3)
  1. TROSPIUM CHLORIDE [Suspect]
     Indication: URINARY INCONTINENCE
     Dosage: 40 MG, QD
     Route: 048
     Dates: start: 20030101
  2. ENDOXAN [Concomitant]
     Indication: SECONDARY PROGRESSIVE MULTIPLE SCLEROSIS
     Dosage: 1180 MG, UNK
     Route: 042
     Dates: start: 20090930
  3. LIORESAL [Concomitant]
     Indication: MUSCLE SPASTICITY
     Dosage: 15 MG, QD
     Route: 048
     Dates: start: 20080701

REACTIONS (1)
  - BREAST CANCER STAGE II [None]
